FAERS Safety Report 13224669 (Version 1)
Quarter: 2017Q1

REPORT INFORMATION
  Report Type: Spontaneous
  Country: JP (occurrence: JP)
  Receive Date: 20170213
  Receipt Date: 20170213
  Transmission Date: 20170428
  Serious: Yes (Death, Life-Threatening, Other)
  Sender: FDA-Public Use
  Company Number: JP-009507513-1702JPN000557J

PATIENT
  Age: 80 Year
  Sex: Male

DRUGS (5)
  1. ESLAX INTRAVENOUS 25MG/2.5ML [Suspect]
     Active Substance: ROCURONIUM BROMIDE
     Indication: NEUROMUSCULAR BLOCKING THERAPY
     Dosage: 40 MG, QD
     Route: 042
     Dates: start: 201609, end: 201609
  2. MIDAZOLAM [Concomitant]
     Active Substance: MIDAZOLAM HYDROCHLORIDE
     Indication: INDUCTION OF ANAESTHESIA
     Dosage: 3 MG, QD
     Route: 041
     Dates: start: 201609, end: 201609
  3. REMIFENTANIL HYDROCHLORIDE [Concomitant]
     Active Substance: REMIFENTANIL HYDROCHLORIDE
     Indication: INDUCTION OF ANAESTHESIA
     Dosage: 0.3 MICROGRAM PER KILOGRAM, QD
     Route: 041
     Dates: start: 201609, end: 201609
  4. DESFLURANE. [Concomitant]
     Active Substance: DESFLURANE
     Indication: MAINTENANCE OF ANAESTHESIA
     Dosage: UNK
     Route: 055
     Dates: start: 201609, end: 201609
  5. REMIFENTANIL HYDROCHLORIDE [Concomitant]
     Active Substance: REMIFENTANIL HYDROCHLORIDE
     Indication: MAINTENANCE OF ANAESTHESIA

REACTIONS (2)
  - Pulmonary embolism [Unknown]
  - Cardiac arrest [Fatal]

NARRATIVE: CASE EVENT DATE: 201609
